FAERS Safety Report 15836551 (Version 1)
Quarter: 2019Q1

REPORT INFORMATION
  Report Type: Spontaneous
  Country: US (occurrence: US)
  Receive Date: 20190117
  Receipt Date: 20190117
  Transmission Date: 20190417
  Serious: No
  Sender: FDA-Public Use
  Company Number: US-TEVA-2019-US-999194

PATIENT
  Age: 57 Year
  Sex: Female
  Weight: 59 kg

DRUGS (9)
  1. TOPAMAX [Concomitant]
     Active Substance: TOPIRAMATE
  2. KLONOPIN [Concomitant]
     Active Substance: CLONAZEPAM
  3. CYMBALTA [Concomitant]
     Active Substance: DULOXETINE HYDROCHLORIDE
  4. ZOFRAN [Concomitant]
     Active Substance: ONDANSETRON HYDROCHLORIDE
  5. BACLOFEN. [Concomitant]
     Active Substance: BACLOFEN
  6. RIZATRIPTAN. [Concomitant]
     Active Substance: RIZATRIPTAN
  7. AJOVY [Suspect]
     Active Substance: FREMANEZUMAB-VFRM
     Indication: MIGRAINE
     Dosage: DOSE STRENGTH: 225MG/1.5 ML?LATEST DOSE WAS ONE INJECTION INTO HER LEFT THIGH ON 05-JAN-2019
     Route: 065
     Dates: start: 201811
  8. GABAPENTIN. [Concomitant]
     Active Substance: GABAPENTIN
  9. BENTYL [Concomitant]
     Active Substance: DICYCLOMINE HYDROCHLORIDE

REACTIONS (17)
  - Skin exfoliation [Unknown]
  - Scab [Unknown]
  - Eructation [Unknown]
  - Erythema [Unknown]
  - Eye pruritus [Unknown]
  - Headache [Unknown]
  - Feeling abnormal [Unknown]
  - Dry mouth [Unknown]
  - Asthenia [Unknown]
  - Back pain [Unknown]
  - Feeling cold [Unknown]
  - Dysphagia [Unknown]
  - Pruritus [Unknown]
  - Nausea [Unknown]
  - Cough [Unknown]
  - Burning sensation [Unknown]
  - Abdominal discomfort [Unknown]

NARRATIVE: CASE EVENT DATE: 201811
